FAERS Safety Report 8064238-7 (Version None)
Quarter: 2012Q1

REPORT INFORMATION
  Report Type: 
  Country: None (occurrence: None)
  Receive Date: 20120123
  Receipt Date: 20120117
  Transmission Date: 20120608
  Serious: No
  Sender: FDA-Public Use
  Company Number: US-PFIZER INC-2012014017

PATIENT
  Sex: Female
  Weight: 134 kg

DRUGS (9)
  1. BENAZEPRIL [Concomitant]
     Indication: HYPERTENSION
     Dosage: 10 MG, DAILY
  2. METFORMIN [Concomitant]
     Indication: GLUCOSE TOLERANCE IMPAIRED
     Dosage: 500 MG, DAILY
  3. SINGULAIR [Concomitant]
     Indication: CHRONIC SINUSITIS
  4. SINGULAIR [Concomitant]
     Indication: HYPERSENSITIVITY
     Dosage: 10 MG, DAILY
  5. MOBIC [Concomitant]
     Indication: OSTEOARTHRITIS
     Dosage: 15 MG, DAILY
  6. NORVASC [Concomitant]
     Indication: HYPERTENSION
     Dosage: 10 MG, DAILY
  7. GABAPENTIN [Suspect]
     Indication: FIBROMYALGIA
     Dosage: 200 MG, 2X/DAY
     Route: 048
     Dates: start: 20120101
  8. ZOLOFT [Concomitant]
     Indication: DEPRESSION
     Dosage: UNK,DAILY
  9. BENAZEPRIL HYDROCHLORIDE/HYDROCHLOROTHIAZIDE [Concomitant]
     Indication: HYPERTENSION
     Dosage: 20/25MG,DAILY

REACTIONS (2)
  - PAIN [None]
  - DRUG INEFFECTIVE [None]
